FAERS Safety Report 12047479 (Version 1)
Quarter: 2016Q1

REPORT INFORMATION
  Report Type: Other
  Country: CA (occurrence: CA)
  Receive Date: 20160209
  Receipt Date: 20160209
  Transmission Date: 20160526
  Serious: No
  Sender: FDA-Public Use
  Company Number: CA-LUPIN PHARMACEUTICALS INC.-2016-00155

PATIENT
  Age: 76 Year
  Sex: Female

DRUGS (2)
  1. DONEPEZIL. [Suspect]
     Active Substance: DONEPEZIL
     Indication: PRODUCT USED FOR UNKNOWN INDICATION
     Dosage: 10 MG
     Route: 065
  2. DONEPEZIL. [Suspect]
     Active Substance: DONEPEZIL
     Dosage: INCREASED DOSE
     Route: 065

REACTIONS (1)
  - Hypomania [Recovered/Resolved]
